FAERS Safety Report 18157627 (Version 1)
Quarter: 2020Q3

REPORT INFORMATION
  Report Type: Spontaneous
  Country: DE (occurrence: DE)
  Receive Date: 20200817
  Receipt Date: 20200817
  Transmission Date: 20201103
  Serious: No
  Sender: FDA-Public Use
  Company Number: DE-LUPIN PHARMACEUTICALS INC.-2020-02528

PATIENT
  Age: 60 Year
  Sex: Female

DRUGS (1)
  1. ROSUVASTATIN. [Suspect]
     Active Substance: ROSUVASTATIN
     Indication: LOW DENSITY LIPOPROTEIN INCREASED
     Dosage: 10 MILLIGRAM, UNK
     Route: 065

REACTIONS (1)
  - Drug intolerance [Unknown]
